FAERS Safety Report 7757560 (Version 2)
Quarter: 2012Q4

REPORT INFORMATION
  Report Type: 
  Country: CA (occurrence: CA)
  Receive Date: 20110112
  Receipt Date: 20121109
  Transmission Date: 20130627
  Serious: Yes (Other)
  Sender: FDA-Public Use
  Company Number: PHHY2008CA37290

PATIENT
  Sex: Male

DRUGS (5)
  1. SANDOSTATIN LAR [Suspect]
     Indication: PANCREATIC NEUROENDOCRINE TUMOUR
     Dosage: 30 mg, every 4 weeks
     Route: 030
     Dates: start: 20060127
  2. CHEMOTHERAPEUTICS NOS [Concomitant]
  3. HYDROMORPHONE [Concomitant]
  4. NORTRIPTYLINE [Concomitant]
     Dosage: 50mg in the morning and to 5mg
  5. FAMOTIDINE [Concomitant]

REACTIONS (16)
  - Hypotension [Unknown]
  - Blood pressure decreased [Unknown]
  - Fall [Unknown]
  - Weight decreased [Unknown]
  - Laceration [Unknown]
  - Contusion [Unknown]
  - Oedema peripheral [Unknown]
  - Somnolence [Unknown]
  - Musculoskeletal discomfort [Unknown]
  - Back pain [Unknown]
  - Pain [Unknown]
  - Tooth abscess [Unknown]
  - Fatigue [Unknown]
  - Abdominal pain [Unknown]
  - Dyspnoea [Unknown]
  - Diarrhoea [Unknown]
